FAERS Safety Report 13661772 (Version 2)
Quarter: 2018Q1

REPORT INFORMATION
  Report Type: Spontaneous
  Country: CA (occurrence: CA)
  Receive Date: 20170616
  Receipt Date: 20180313
  Transmission Date: 20180508
  Serious: Yes (Other)
  Sender: FDA-Public Use
  Company Number: CA-SA-2017SA105803

PATIENT
  Age: 51 Year
  Sex: Female

DRUGS (13)
  1. HUMIRA [Suspect]
     Active Substance: ADALIMUMAB
     Dosage: FORM:- SOLUTION SUBCUTANEOUS
     Route: 058
  2. METHOTREXATE SODIUM. [Suspect]
     Active Substance: METHOTREXATE SODIUM
     Route: 065
  3. REMICADE [Suspect]
     Active Substance: INFLIXIMAB
     Dosage: FORM:- POWDER FOR SOLUTION INTRAVENOUS
     Route: 042
  4. XELJANZ [Concomitant]
     Active Substance: TOFACITINIB CITRATE
  5. PREDNISONE. [Concomitant]
     Active Substance: PREDNISONE
     Route: 065
  6. ARAVA [Suspect]
     Active Substance: LEFLUNOMIDE
     Route: 048
  7. HYDROXYCHLOROQUINE [Suspect]
     Active Substance: HYDROXYCHLOROQUINE
     Route: 048
  8. ENBREL [Suspect]
     Active Substance: ETANERCEPT
     Route: 058
  9. PREVACID [Concomitant]
     Active Substance: LANSOPRAZOLE
     Route: 065
  10. ACTEMRA [Suspect]
     Active Substance: TOCILIZUMAB
     Indication: RHEUMATOID ARTHRITIS
     Route: 042
     Dates: start: 2013, end: 2014
  11. ORENCIA [Suspect]
     Active Substance: ABATACEPT
     Route: 042
  12. RITUXAN [Suspect]
     Active Substance: RITUXIMAB
     Indication: RHEUMATOID ARTHRITIS
     Dosage: FORM:- SOLUTION INTRAVENOUS
     Route: 042
     Dates: start: 2012, end: 2013
  13. SIMPONI [Suspect]
     Active Substance: GOLIMUMAB
     Dosage: FORM:- SOLUTION?SUBCUTANEOUS
     Route: 058

REACTIONS (13)
  - Syncope [Unknown]
  - Arthritis [Unknown]
  - Cough [Unknown]
  - Urticaria [Unknown]
  - Drug ineffective [Unknown]
  - Dyspnoea [Unknown]
  - Diarrhoea [Unknown]
  - Infection [Unknown]
  - Headache [Unknown]
  - Gingival bleeding [Unknown]
  - Eye haemorrhage [Unknown]
  - Rash [Unknown]
  - Liver function test increased [Unknown]
